FAERS Safety Report 7825103-0 (Version None)
Quarter: 2011Q4

REPORT INFORMATION
  Report Type: 
  Country: None (occurrence: None)
  Receive Date: 20111019
  Receipt Date: 20101006
  Transmission Date: 20120403
  Serious: No
  Sender: FDA-Public Use
  Company Number: US-BRISTOL-MYERS SQUIBB COMPANY-15321078

PATIENT
  Age: 59 Year
  Sex: Male
  Weight: 72 kg

DRUGS (1)
  1. AVALIDE [Suspect]
     Indication: HYPERTENSION
     Dosage: 1 DF= 300/25MG THEN REDUCED TO HALF DURATION: MORE THAN 5 YRS INTERRPTD FOR 2 WKS
     Dates: end: 20100901

REACTIONS (6)
  - MUSCULOSKELETAL PAIN [None]
  - JOINT SWELLING [None]
  - OEDEMA PERIPHERAL [None]
  - HYPOTENSION [None]
  - ERECTILE DYSFUNCTION [None]
  - ASTHENIA [None]
